FAERS Safety Report 17297179 (Version 3)
Quarter: 2020Q1

REPORT INFORMATION
  Report Type: Spontaneous
  Country: US (occurrence: US)
  Receive Date: 20200121
  Receipt Date: 20200313
  Transmission Date: 20200409
  Serious: No
  Sender: FDA-Public Use
  Company Number: US-JNJFOC-20191023320

PATIENT
  Age: 64 Year
  Sex: Female
  Weight: 63.56 kg

DRUGS (2)
  1. ULTRAM [Suspect]
     Active Substance: TRAMADOL HYDROCHLORIDE
     Indication: FIBROMYALGIA
     Dosage: 4-5 TABLETS PER DAY
     Route: 048
     Dates: start: 200209, end: 20191013
  2. ULTRAM [Suspect]
     Active Substance: TRAMADOL HYDROCHLORIDE
     Route: 048
     Dates: start: 2009

REACTIONS (8)
  - Product contamination [Unknown]
  - Headache [Recovered/Resolved]
  - Medication error [Unknown]
  - Hyperhidrosis [Recovered/Resolved]
  - Product commingling [Unknown]
  - Wrong technique in product usage process [Unknown]
  - Nausea [Recovered/Resolved]
  - Pain [Recovered/Resolved]

NARRATIVE: CASE EVENT DATE: 20191008
